FAERS Safety Report 8558579-4 (Version None)
Quarter: 2012Q3

REPORT INFORMATION
  Report Type: 
  Country: None (occurrence: None)
  Receive Date: 20120801
  Receipt Date: 20120723
  Transmission Date: 20120928
  Serious: Yes (Life-Threatening, Hospitalization)
  Sender: FDA-Public Use
  Company Number: US-009507513-1207USA011100

PATIENT

DRUGS (9)
  1. PREDNISONE [Suspect]
     Route: 048
  2. FLUTICASONE FUROATE [Concomitant]
  3. SYSTANE ULTRA [Concomitant]
  4. RESTASIS [Concomitant]
  5. ASPIRIN [Concomitant]
  6. METOPROLOL TARTRATE [Concomitant]
  7. ZOCOR [Suspect]
     Route: 048
  8. ABIRATERONE ACETATE [Suspect]
     Route: 048
  9. ZALEPLON [Concomitant]

REACTIONS (2)
  - DEHYDRATION [None]
  - RHABDOMYOLYSIS [None]
